FAERS Safety Report 6152546-6 (Version None)
Quarter: 2009Q2

REPORT INFORMATION
  Report Type: 
  Country: None (occurrence: None)
  Receive Date: 20090413
  Receipt Date: 20090402
  Transmission Date: 20091009
  Serious: Yes (Other)
  Sender: FDA-Public Use
  Company Number: US-BAYER-200918127GPV

PATIENT
  Age: 39 Year
  Sex: Male

DRUGS (3)
  1. MABCAMPATH [Suspect]
     Indication: MULTIPLE SCLEROSIS
     Dosage: 2 DOSES RECEIVED
  2. OMEPRAZOL [Concomitant]
  3. METOPROLOL TARTRATE [Concomitant]
     Dates: start: 20090403

REACTIONS (1)
  - ATRIAL FIBRILLATION [None]
